FAERS Safety Report 6025411-2 (Version None)
Quarter: 2008Q4

REPORT INFORMATION
  Report Type: 
  Country: None (occurrence: None)
  Receive Date: 20081231
  Receipt Date: 20081222
  Transmission Date: 20090506
  Serious: Yes (Other)
  Sender: FDA-Public Use
  Company Number: US-CELGENEUS-163-21880-08121548

PATIENT
  Sex: Female

DRUGS (3)
  1. REVLIMID [Suspect]
     Route: 048
     Dates: start: 20081126
  2. REVLIMID [Suspect]
     Dosage: 10-5MG
     Route: 048
     Dates: start: 20080324, end: 20080901
  3. REVLIMID [Suspect]
     Route: 048
     Dates: start: 20070827, end: 20070901

REACTIONS (2)
  - COLONIC OBSTRUCTION [None]
  - NEUROPATHY PERIPHERAL [None]
